FAERS Safety Report 5315946-X (Version None)
Quarter: 2007Q2

REPORT INFORMATION
  Report Type: 
  Country: None (occurrence: None)
  Receive Date: 20070503
  Receipt Date: 20070420
  Transmission Date: 20071010
  Serious: Yes (Other)
  Sender: FDA-Public Use
  Company Number: JP-ROCHE-486304

PATIENT
  Age: 67 Year
  Sex: Female
  Weight: 48 kg

DRUGS (8)
  1. TAMIFLU [Suspect]
     Indication: INFLUENZA
     Route: 048
     Dates: start: 20070303, end: 20070303
  2. TAMIFLU [Suspect]
     Route: 048
     Dates: start: 20040304, end: 20040304
  3. CLARITHROMYCIN [Concomitant]
     Route: 048
     Dates: start: 20070303
  4. TIARAMIDE HYDROCHLORIDE [Concomitant]
     Dosage: DRUG NAME REPORTED:CORENSOUL
     Route: 048
     Dates: start: 20070303
  5. CODEINE PHOSPHATE [Concomitant]
     Route: 048
     Dates: start: 20070303
  6. PROCATEROL HCL [Concomitant]
     Dosage: DRUG NAME REPORTED AS STABINT
     Route: 048
     Dates: start: 20070303
  7. MULTI-VITAMINS [Concomitant]
     Dosage: REPORTED AS OTHER VITAMIN PREPARATIONS
     Route: 041
     Dates: start: 20070303
  8. MAXIPIME [Concomitant]
     Route: 041
     Dates: start: 20070303

REACTIONS (1)
  - LOSS OF CONSCIOUSNESS [None]
